FAERS Safety Report 10202480 (Version 2)
Quarter: 2014Q2

REPORT INFORMATION
  Report Type: Spontaneous
  Country: US (occurrence: US)
  Receive Date: 20140528
  Receipt Date: 20140623
  Transmission Date: 20141212
  Serious: No
  Sender: FDA-Public Use
  Company Number: US-B.I. PHARMACEUTICALS,INC./RIDGEFIELD-2014-BI-21968BP

PATIENT
  Age: 64 Year
  Sex: Female
  Weight: 77 kg

DRUGS (14)
  1. COMBIVENT [Suspect]
     Indication: CHRONIC OBSTRUCTIVE PULMONARY DISEASE
     Dosage: DOSE PER APPLICATION: 20 MCG / 100 MCG; DAILY DOSE: 80 MCG/ 400 MCG
     Route: 055
     Dates: start: 201305
  2. SYNTHROID [Concomitant]
     Dosage: 137 MCG
     Route: 048
  3. CALCITRIOL [Concomitant]
     Dosage: 0.5 MCG
     Route: 048
  4. ZOCOR [Concomitant]
     Dosage: 20 MG
     Route: 048
  5. OMEPRAZOLE [Concomitant]
     Dosage: 40 MG
     Route: 048
  6. PARAFON FORTE [Concomitant]
     Dosage: 1500 MG
     Route: 048
  7. COUMADIN [Concomitant]
     Indication: HEART VALVE REPLACEMENT
     Route: 048
  8. COUMADIN [Concomitant]
     Dosage: 7.5 MG
     Route: 048
  9. LEXAPRO [Concomitant]
     Dosage: 20 MG
     Route: 048
  10. OCYCONTIN [Concomitant]
     Dosage: 80 MG
     Route: 048
     Dates: end: 20140514
  11. RESTORIL [Concomitant]
     Indication: INSOMNIA
     Dosage: 30 MG
     Route: 048
  12. LATANOPROST [Concomitant]
     Dosage: FORMULATION: OPTHALMIC SOLUTION
     Route: 050
  13. CALCIUM [Concomitant]
     Dosage: 2400 MG
     Route: 048
  14. PROAIR HFA [Concomitant]
     Indication: CHRONIC OBSTRUCTIVE PULMONARY DISEASE
     Route: 055

REACTIONS (4)
  - Oxygen saturation decreased [Not Recovered/Not Resolved]
  - Fall [Recovered/Resolved]
  - Tremor [Not Recovered/Not Resolved]
  - Product quality issue [Recovered/Resolved]
